FAERS Safety Report 8799627 (Version 1)
Quarter: 2012Q4

REPORT INFORMATION
  Report Type: Spontaneous
  Country: US (occurrence: None)
  Receive Date: 20120918
  Receipt Date: 20120918
  Transmission Date: 20130627
  Serious: Yes (Hospitalization)
  Sender: FDA-Public Use
  Company Number: None

PATIENT
  Age: 60 Year
  Sex: Female

DRUGS (6)
  1. PROCRIT [Suspect]
     Indication: ANEMIC
     Dosage: Indirect 10,000 Units under the skin once monthly
     Dates: start: 20120820
  2. LASIX [Concomitant]
  3. ALDACTONE [Concomitant]
  4. NEXIUM [Concomitant]
  5. PREDNISONE [Concomitant]
  6. REQUIP PLUS OTHERS [Concomitant]

REACTIONS (15)
  - Asthenia [None]
  - Dysstasia [None]
  - Gait disturbance [None]
  - Balance disorder [None]
  - Stomatitis [None]
  - Tongue discolouration [None]
  - Plicated tongue [None]
  - Oral pain [None]
  - Pain in extremity [None]
  - Blister [None]
  - Herpes zoster [None]
  - White blood cell count decreased [None]
  - Rash [None]
  - Hepatic cirrhosis [None]
  - Infection in an immunocompromised host [None]
